FAERS Safety Report 4440946-1 (Version None)
Quarter: 2004Q3

REPORT INFORMATION
  Report Type: 
  Country: None (occurrence: None)
  Receive Date: 20040728
  Receipt Date: 20040408
  Transmission Date: 20050211
  Serious: No
  Sender: FDA-Public Use
  Company Number: USA040464600

PATIENT
  Age: 8 Year
  Sex: Male
  Weight: 27 kg

DRUGS (1)
  1. STRATTERA [Suspect]
     Dosage: 85 MG DAY
     Dates: start: 20030801

REACTIONS (8)
  - ABDOMINAL DISTENSION [None]
  - CONSTIPATION [None]
  - HEADACHE [None]
  - MICTURITION URGENCY [None]
  - PRESCRIBED OVERDOSE [None]
  - URINARY HESITATION [None]
  - URINARY RETENTION [None]
  - WEIGHT DECREASED [None]
